FAERS Safety Report 15729365 (Version 1)
Quarter: 2018Q4

REPORT INFORMATION
  Report Type: Spontaneous
  Country: US (occurrence: US)
  Receive Date: 20181215
  Receipt Date: 20181215
  Transmission Date: 20190205
  Serious: Yes (Other)
  Sender: FDA-Public Use
  Company Number: None

PATIENT
  Age: 74 Year
  Sex: Female
  Weight: 76.5 kg

DRUGS (1)
  1. THERATEARS [Suspect]
     Active Substance: CARBOXYMETHYLCELLULOSE SODIUM
     Indication: DRY EYE
     Dosage: ?          QUANTITY:1 DROP(S);?
     Route: 061
     Dates: start: 20181205, end: 20181205

REACTIONS (2)
  - Scleral haemorrhage [None]
  - Eye haemorrhage [None]

NARRATIVE: CASE EVENT DATE: 20181205
